FAERS Safety Report 7865846-6 (Version None)
Quarter: 2011Q4

REPORT INFORMATION
  Report Type: 
  Country: None (occurrence: None)
  Receive Date: 20111028
  Receipt Date: 20110308
  Transmission Date: 20120403
  Serious: No
  Sender: FDA-Public Use
  Company Number: US-GLAXOSMITHKLINE-A0917158A

PATIENT
  Sex: Female

DRUGS (3)
  1. VITAMIN TAB [Concomitant]
  2. ADVAIR DISKUS 100/50 [Suspect]
     Indication: CHRONIC OBSTRUCTIVE PULMONARY DISEASE
     Dosage: 1PUFF TWICE PER DAY
     Route: 055
     Dates: start: 20090101
  3. BLOOD PRESSURE MEDICATION [Concomitant]

REACTIONS (3)
  - MUCOUS MEMBRANE DISORDER [None]
  - GLOSSODYNIA [None]
  - ILL-DEFINED DISORDER [None]
